FAERS Safety Report 15006414 (Version 1)
Quarter: 2018Q2

REPORT INFORMATION
  Report Type: Report from Study
  Country: US (occurrence: US)
  Receive Date: 20180613
  Receipt Date: 20180613
  Transmission Date: 20180711
  Serious: No
  Sender: FDA-Public Use
  Company Number: US-US WORLDMEDS, LLC-USW201707-000976

PATIENT
  Age: 80 Year
  Sex: Male
  Weight: 81.64 kg

DRUGS (13)
  1. ASA [Concomitant]
     Active Substance: ASPIRIN
  2. PROTONIX [Concomitant]
     Active Substance: PANTOPRAZOLE SODIUM
  3. GABAPENTIN. [Concomitant]
     Active Substance: GABAPENTIN
  4. ROPINIROLE. [Concomitant]
     Active Substance: ROPINIROLE
  5. SIMVASTATIN. [Concomitant]
     Active Substance: SIMVASTATIN
  6. APOKYN [Suspect]
     Active Substance: APOMORPHINE HYDROCHLORIDE
     Indication: PARKINSON^S DISEASE
     Route: 058
     Dates: start: 20161212
  7. AZILECT [Concomitant]
     Active Substance: RASAGILINE MESYLATE
  8. TIGAN [Concomitant]
     Active Substance: TRIMETHOBENZAMIDE HYDROCHLORIDE
  9. METOPROLOL. [Concomitant]
     Active Substance: METOPROLOL
  10. LISINOPRIL. [Concomitant]
     Active Substance: LISINOPRIL
  11. SINEMET [Concomitant]
     Active Substance: CARBIDOPA\LEVODOPA
  12. MOBIC [Concomitant]
     Active Substance: MELOXICAM
  13. CARBOXYMETHYLCELLULOSE [Concomitant]
     Active Substance: CARBOXYMETHYLCELLULOSE
     Route: 047

REACTIONS (2)
  - Fall [Recovered/Resolved]
  - Dizziness [Recovered/Resolved]

NARRATIVE: CASE EVENT DATE: 20170622
